FAERS Safety Report 21476677 (Version 3)
Quarter: 2024Q4

REPORT INFORMATION
  Report Type: Spontaneous
  Country: RS (occurrence: RS)
  Receive Date: 20221019
  Receipt Date: 20241028
  Transmission Date: 20250114
  Serious: No
  Sender: NOVARTIS
  Company Number: RS-NOVARTISPH-NVSC2022RS232543

PATIENT
  Sex: Male

DRUGS (1)
  1. COSENTYX [Suspect]
     Active Substance: SECUKINUMAB
     Indication: Psoriasis
     Dosage: UNK (INJECTION)
     Route: 065
     Dates: start: 202103, end: 202405

REACTIONS (3)
  - Phimosis [Unknown]
  - Balanoposthitis [Unknown]
  - Candida infection [Unknown]
